FAERS Safety Report 7633310-5 (Version None)
Quarter: 2011Q3

REPORT INFORMATION
  Report Type: 
  Country: None (occurrence: None)
  Receive Date: 20110725
  Receipt Date: 20100603
  Transmission Date: 20111222
  Serious: No
  Sender: FDA-Public Use
  Company Number: US-BRISTOL-MYERS SQUIBB COMPANY-15135775

PATIENT

DRUGS (3)
  1. SPRYCEL [Suspect]
  2. FUROSEMIDE [Concomitant]
  3. KAPIDEX [Concomitant]

REACTIONS (3)
  - PAIN [None]
  - DYSPNOEA [None]
  - ABDOMINAL DISTENSION [None]
